FAERS Safety Report 13772264 (Version 1)
Quarter: 2017Q3

REPORT INFORMATION
  Report Type: Report from Study
  Country: US (occurrence: US)
  Receive Date: 20170720
  Receipt Date: 20170720
  Transmission Date: 20171127
  Serious: Yes (Death, Other)
  Sender: FDA-Public Use
  Company Number: US-PFIZER INC-2017035032

PATIENT
  Age: 56 Year
  Sex: Female

DRUGS (3)
  1. IBRANCE [Suspect]
     Active Substance: PALBOCICLIB
     Indication: BREAST CANCER
     Dosage: 125 MG, CYCLIC (DAILY, 3 WEEKS ON/1 WEEK OFF)
     Route: 048
     Dates: start: 20170113
  2. IBRANCE [Suspect]
     Active Substance: PALBOCICLIB
     Dosage: 125 MG, CYCLIC (EVERY OTHER DAY FOR 21 DAYS FOLLOWED BY 7 DAYS REST)
     Route: 048
     Dates: start: 20170213
  3. IBRANCE [Suspect]
     Active Substance: PALBOCICLIB
     Dosage: 125 MG, CYCLIC(EVERY OTHER DAY FOR 21 DAYS, FOLLOWED BY 7 DAYS REST)
     Route: 048
     Dates: start: 20170313

REACTIONS (9)
  - Constipation [Unknown]
  - Drug dose omission [Unknown]
  - Fatigue [Unknown]
  - Death [Fatal]
  - Full blood count decreased [Unknown]
  - Vaginal haemorrhage [Unknown]
  - Insomnia [Unknown]
  - Decreased appetite [Unknown]
  - Headache [Unknown]

NARRATIVE: CASE EVENT DATE: 20170714
